FAERS Safety Report 6623924-3 (Version None)
Quarter: 2010Q1

REPORT INFORMATION
  Report Type: 
  Country: None (occurrence: None)
  Receive Date: 20100223
  Receipt Date: 20091207
  Transmission Date: 20100710
  Serious: No
  Sender: FDA-Public Use
  Company Number: 8054956

PATIENT
  Sex: Female
  Weight: 56.2 kg

DRUGS (5)
  1. CERTOLIZUMAB PEGOL [Suspect]
     Indication: CROHN'S DISEASE
     Dosage: 400 MG SUBCUTANEOUS
     Route: 058
     Dates: start: 20090529
  2. VICODIN [Concomitant]
  3. PHENERGAN HCL [Concomitant]
  4. TYLENOL-500 [Concomitant]
  5. ADVIL [Concomitant]

REACTIONS (4)
  - BLOOD GLUCOSE DECREASED [None]
  - BODY TEMPERATURE [None]
  - LABORATORY TEST ABNORMAL [None]
  - URINARY TRACT INFECTION [None]
